FAERS Safety Report 7588457-9 (Version None)
Quarter: 2011Q3

REPORT INFORMATION
  Report Type: 
  Country: None (occurrence: None)
  Receive Date: 20110705
  Receipt Date: 20110624
  Transmission Date: 20111222
  Serious: Yes (Other)
  Sender: FDA-Public Use
  Company Number: US-BAYER-2011-056664

PATIENT
  Sex: Female
  Weight: 40 kg

DRUGS (9)
  1. YASMIN [Suspect]
     Indication: CONTRACEPTION
     Dosage: UNK
     Dates: start: 20030814, end: 20100512
  2. YASMIN [Suspect]
     Indication: MENSTRUAL CYCLE MANAGEMENT
  3. THERAGRAN-M [Concomitant]
     Dosage: UNK
     Dates: start: 20050101
  4. ASPIRIN [Concomitant]
  5. RITALIN [Concomitant]
     Indication: ATTENTION DEFICIT/HYPERACTIVITY DISORDER
     Dosage: UNK
  6. ADVIL LIQUI-GELS [Concomitant]
  7. MULTI-VITAMIN [Concomitant]
  8. IBUPROFEN [Concomitant]
  9. MOTRIN [Concomitant]

REACTIONS (16)
  - CHEST PAIN [None]
  - DISCOMFORT [None]
  - MENTAL DISORDER [None]
  - DIARRHOEA [None]
  - SWELLING [None]
  - JOINT SWELLING [None]
  - OEDEMA PERIPHERAL [None]
  - SWELLING FACE [None]
  - IRRITABLE BOWEL SYNDROME [None]
  - PAIN [None]
  - ABDOMINAL PAIN UPPER [None]
  - HEADACHE [None]
  - DEPRESSION [None]
  - CHOLELITHIASIS [None]
  - DIZZINESS [None]
  - ANXIETY [None]
